FAERS Safety Report 23765027 (Version 1)
Quarter: 2024Q2

REPORT INFORMATION
  Report Type: Report from Study
  Country: US (occurrence: US)
  Receive Date: 20240420
  Receipt Date: 20240420
  Transmission Date: 20240716
  Serious: Yes (Other)
  Sender: FDA-Public Use
  Company Number: US-ABBVIE-5724473

PATIENT
  Sex: Male

DRUGS (1)
  1. VENCLEXTA [Suspect]
     Active Substance: VENETOCLAX
     Indication: Acute monocytic leukaemia
     Route: 048
     Dates: end: 20240408

REACTIONS (1)
  - Haemoglobin decreased [Recovering/Resolving]
